FAERS Safety Report 8564568-6 (Version None)
Quarter: 2012Q3

REPORT INFORMATION
  Report Type: 
  Country: None (occurrence: None)
  Receive Date: 20120803
  Receipt Date: 20120731
  Transmission Date: 20120928
  Serious: Yes (Other)
  Sender: FDA-Public Use
  Company Number: CA-PFIZER INC-2012188121

PATIENT

DRUGS (1)
  1. CELEBREX [Suspect]
     Indication: PROPHYLAXIS
     Dosage: 200 MG, 1X/DAY

REACTIONS (1)
  - ATRIAL FIBRILLATION [None]
